FAERS Safety Report 7733009-0 (Version None)
Quarter: 2011Q3

REPORT INFORMATION
  Report Type: 
  Country: None (occurrence: None)
  Receive Date: 20110907
  Receipt Date: 20110901
  Transmission Date: 20111222
  Serious: No
  Sender: FDA-Public Use
  Company Number: US-PFIZER INC-2011205328

PATIENT
  Sex: Female
  Weight: 72.562 kg

DRUGS (6)
  1. CELEBREX [Concomitant]
     Indication: ARTHRITIS
     Dosage: 200 MG, 1X/DAY
     Route: 048
  2. CLONAZEPAM [Concomitant]
     Indication: ANXIETY
     Dosage: 0.5 MG, TWICE DAILY AS NEEDED
     Route: 048
  3. NEURONTIN [Concomitant]
     Indication: PAIN IN EXTREMITY
     Dosage: 300 MG, 1X/DAY
     Route: 048
  4. PRISTIQ [Suspect]
     Indication: DEPRESSION
     Dosage: 100 MG, DAILY
     Route: 048
     Dates: start: 20090101
  5. NEURONTIN [Concomitant]
     Indication: BURNING SENSATION
  6. SYNTHROID [Suspect]
     Indication: THYROID DISORDER
     Dosage: 50 UG, DAILY
     Route: 048

REACTIONS (1)
  - HYPERHIDROSIS [None]
